FAERS Safety Report 10525203 (Version 2)
Quarter: 2014Q4

REPORT INFORMATION
  Report Type: Spontaneous
  Country: US (occurrence: US)
  Receive Date: 20141017
  Receipt Date: 20141212
  Transmission Date: 20150528
  Serious: Yes (Other)
  Sender: FDA-Public Use
  Company Number: US-TEVA-516197USA

PATIENT
  Age: 47 Year
  Sex: Female

DRUGS (1)
  1. PARAGARD T380A [Suspect]
     Active Substance: COPPER
     Indication: CONTRACEPTION
     Route: 015
     Dates: start: 2006, end: 20140827

REACTIONS (3)
  - Device breakage [Recovered/Resolved]
  - Expired product administered [Recovered/Resolved]
  - Dysmenorrhoea [Unknown]

NARRATIVE: CASE EVENT DATE: 201210
